FAERS Safety Report 6934184-8 (Version None)
Quarter: 2010Q3

REPORT INFORMATION
  Report Type: 
  Country: None (occurrence: None)
  Receive Date: 20100820
  Receipt Date: 20100810
  Transmission Date: 20110219
  Serious: Yes (Hospitalization)
  Sender: FDA-Public Use
  Company Number: US-JNJFOC-20100802438

PATIENT
  Sex: Female
  Weight: 38.3 kg

DRUGS (7)
  1. REMICADE [Suspect]
     Indication: CROHN'S DISEASE
     Route: 042
  2. HUMIRA [Suspect]
     Indication: CROHN'S DISEASE
     Route: 042
  3. ANTIBIOTICS [Concomitant]
  4. TPN ELECTROLYTES IN PLASTIC CONTAINER [Concomitant]
  5. IRON [Concomitant]
  6. PREVACID [Concomitant]
  7. FOLIC ACID [Concomitant]

REACTIONS (1)
  - CROHN'S DISEASE [None]
